FAERS Safety Report 8543688 (Version 3)
Quarter: 2012Q4

REPORT INFORMATION
  Report Type: 
  Country: US (occurrence: US)
  Receive Date: 20120503
  Receipt Date: 20121017
  Transmission Date: 20130627
  Serious: Yes (Hospitalization, Other)
  Sender: FDA-Public Use
  Company Number: US-US-EMD SERONO, INC.-7128883

PATIENT
  Age: 46 None
  Sex: Female
  Weight: 64 kg

DRUGS (4)
  1. REBIF [Suspect]
     Indication: MULTIPLE SCLEROSIS
     Route: 058
     Dates: start: 20081105
  2. GABAPENTIN [Concomitant]
     Indication: BAND SENSATION
  3. PRISTIQ (DESVENLAFAXINE) [Concomitant]
     Indication: DEPRESSION
  4. BACLOFEN [Concomitant]
     Indication: MUSCLE SPASMS

REACTIONS (5)
  - Splenic abscess [Recovered/Resolved]
  - Upper respiratory tract infection [Recovered/Resolved]
  - Gastrointestinal disorder [Unknown]
  - Headache [Not Recovered/Not Resolved]
  - Injection site reaction [Recovered/Resolved]
